FAERS Safety Report 7797436-8 (Version None)
Quarter: 2011Q4

REPORT INFORMATION
  Report Type: 
  Country: None (occurrence: None)
  Receive Date: 20111005
  Receipt Date: 20110926
  Transmission Date: 20120403
  Serious: No
  Sender: FDA-Public Use
  Company Number: FR-ROCHE-801805

PATIENT
  Sex: Male
  Weight: 69 kg

DRUGS (5)
  1. PEGINTERFERON ALFA-2A [Suspect]
     Indication: HEPATITIS C
     Dosage: FREQUENCY: QS, DOSING AMOUNT IN UG
     Route: 058
  2. RO 5024048 (HCV POLYMERASE INHIBITOR) [Suspect]
     Indication: HEPATITIS C
     Dosage: DOSING AMOUNT IN MG
     Route: 048
  3. COPEGUS [Suspect]
     Indication: HEPATITIS C
     Dosage: DOSING AMOUNT IN MG
     Route: 048
  4. RITONAVIR [Suspect]
     Indication: HEPATITIS C
     Dosage: DOSING AMOUNT IN MG
     Route: 048
  5. RO 5190591 (HCV PROTEASE INHIBITOR) [Suspect]
     Indication: HEPATITIS C
     Dosage: DOSING AMOUNT IN MG
     Route: 048

REACTIONS (1)
  - IRRITABILITY [None]
